FAERS Safety Report 6422269-4 (Version None)
Quarter: 2009Q4

REPORT INFORMATION
  Report Type: 
  Country: None (occurrence: None)
  Receive Date: 20091028
  Receipt Date: 20091021
  Transmission Date: 20100525
  Serious: Yes (Hospitalization)
  Sender: FDA-Public Use
  Company Number: 411221

PATIENT
  Age: 60 Year
  Sex: Male

DRUGS (7)
  1. FENTANYL-100 [Suspect]
     Indication: PERIOPERATIVE ANALGESIA
     Dosage: 650 MCG, INTRAVENOUS BOLUS
     Route: 040
  2. (HYDROMORPHONE) [Suspect]
     Indication: EPIDURAL ANAESTHESIA
     Dosage: 10 MCG/ML AT 6 ML/HR, EPIDURAL
     Route: 008
  3. FENTANYL-100 [Suspect]
     Indication: BREAKTHROUGH PAIN
     Dosage: 75 MCG EVERY 72 HOURS, TRANSDERMAL
     Route: 062
  4. (HYDROMORPHONE) [Suspect]
     Indication: BREAKTHROUGH PAIN
     Dosage: 4 MG EVERY 4 HOURS PRN, ORAL
     Route: 048
  5. BUPIVACAINE [Concomitant]
  6. (METOPROLOL) [Concomitant]
  7. (ANESTHETICS, GENERAL) [Concomitant]

REACTIONS (9)
  - ANXIETY [None]
  - ATRIAL FIBRILLATION [None]
  - CHILLS [None]
  - COLD SWEAT [None]
  - DRUG WITHDRAWAL SYNDROME [None]
  - HEADACHE [None]
  - MYALGIA [None]
  - PAIN [None]
  - TREMOR [None]
